FAERS Safety Report 6965435-1 (Version None)
Quarter: 2010Q3

REPORT INFORMATION
  Report Type: 
  Country: None (occurrence: None)
  Receive Date: 20100903
  Receipt Date: 20100825
  Transmission Date: 20110219
  Serious: Yes (Death, Hospitalization)
  Sender: FDA-Public Use
  Company Number: A0879153A

PATIENT
  Age: 50 Year
  Sex: Male

DRUGS (1)
  1. AVANDIA [Suspect]
     Dates: start: 20000101, end: 20030101

REACTIONS (3)
  - ANGINA PECTORIS [None]
  - CEREBROVASCULAR ACCIDENT [None]
  - CORONARY ARTERY BYPASS [None]
